FAERS Safety Report 10081918 (Version 1)
Quarter: 2014Q2

REPORT INFORMATION
  Report Type: Spontaneous
  Country: US (occurrence: None)
  Receive Date: 20140415
  Receipt Date: 20140415
  Transmission Date: 20141212
  Serious: Yes (Other)
  Sender: FDA-Public Use
  Company Number: None

PATIENT
  Age: 28 Year
  Sex: Male

DRUGS (1)
  1. HUMIRA 40 MG [Suspect]
     Indication: RHEUMATOID ARTHRITIS
     Dosage: 160 MG DAY 1, 80 MG DAY 15, LOADING DOSE, SQ
     Route: 058
     Dates: start: 20140322

REACTIONS (3)
  - Rash [None]
  - Acne [None]
  - Hyperhidrosis [None]
